FAERS Safety Report 19044294 (Version 1)
Quarter: 2021Q1

REPORT INFORMATION
  Report Type: Spontaneous
  Country: GB (occurrence: GB)
  Receive Date: 20210323
  Receipt Date: 20210323
  Transmission Date: 20210420
  Serious: Yes (Hospitalization, Other)
  Sender: FDA-Public Use
  Company Number: GB-SA-2021SA090446

PATIENT
  Sex: Female

DRUGS (5)
  1. DAPTOMYCIN. [Interacting]
     Active Substance: DAPTOMYCIN
     Dosage: UNK
  2. CIPROFLOXACIN. [Interacting]
     Active Substance: CIPROFLOXACIN
     Dosage: UNK
  3. NEORAL [Interacting]
     Active Substance: CYCLOSPORINE
     Dosage: UNK
  4. FLUCONAZOLE. [Interacting]
     Active Substance: FLUCONAZOLE
     Dosage: UNK
  5. RIFAMPICIN [Suspect]
     Active Substance: RIFAMPIN
     Dosage: UNK

REACTIONS (1)
  - Drug interaction [Unknown]
